FAERS Safety Report 17449151 (Version 1)
Quarter: 2020Q1

REPORT INFORMATION
  Report Type: Spontaneous
  Country: US (occurrence: US)
  Receive Date: 20200224
  Receipt Date: 20200224
  Transmission Date: 20200409
  Serious: Yes (Other)
  Sender: FDA-Public Use
  Company Number: US-TEVA-2020-US-1190200

PATIENT
  Age: 8 Year
  Sex: Male

DRUGS (12)
  1. RITUXIMAB. [Concomitant]
     Active Substance: RITUXIMAB
     Indication: PROPHYLAXIS
     Dosage: ADMINISTERED PRE-TRANSPLANT
     Route: 065
  2. BORTEZOMIB. [Concomitant]
     Active Substance: BORTEZOMIB
     Route: 065
  3. PREDNISONE. [Suspect]
     Active Substance: PREDNISONE
     Dosage: FOLLOWING DISCHARGE (WITH IMPROVED RENAL FUNCTION)
     Route: 065
  4. PREDNISONE. [Suspect]
     Active Substance: PREDNISONE
     Dosage: DOSE AT DETECTION OF BK DNAEMIA
     Route: 065
  5. MYCOPHENOLATE MOFETIL. [Suspect]
     Active Substance: MYCOPHENOLATE MOFETIL
     Indication: IMMUNOSUPPRESSANT DRUG THERAPY
     Dosage: DOSE: 450 MG/M2; ADMINISTERED IN DIVIDED DOSES EVERY 12 HOURS (INITIAL DOSE)
     Route: 065
  6. MYCOPHENOLATE MOFETIL. [Suspect]
     Active Substance: MYCOPHENOLATE MOFETIL
     Dosage: DOSE: 1200 MG/M2; ADMINISTERED IN DIVIDED DOSES BID (DOSE AT DETECTION OF BK DNAEMIA)
     Route: 065
  7. TACROLIMUS. [Suspect]
     Active Substance: TACROLIMUS
     Indication: IMMUNOSUPPRESSANT DRUG THERAPY
     Dosage: DOSE: 0.3 MG/KG/DAY; ADMINISTERED IN DIVIDED DOSES EVERY 8 HOURS (INITIAL DOSE)
     Route: 065
  8. PREDNISONE. [Suspect]
     Active Substance: PREDNISONE
     Indication: IMMUNOSUPPRESSANT DRUG THERAPY
     Dosage: INITIAL DOSE
     Route: 065
  9. TACROLIMUS. [Suspect]
     Active Substance: TACROLIMUS
     Dosage: DOSE: 0.29 MG/KG/DAY; ADMINISTERED IN DIVIDED DOSES BID (DOSE AT DETECTION OF BK DNAEMIA)
     Route: 065
  10. ECULIZUMAB [Concomitant]
     Active Substance: ECULIZUMAB
     Route: 065
  11. INTRAVENOUS IMMUNOGLOBULIN [Concomitant]
     Active Substance: HUMAN IMMUNOGLOBULIN G
     Indication: PROPHYLAXIS
     Dosage: DOSE: 2G/KG
     Route: 042
  12. OFATUMUMAB [Concomitant]
     Active Substance: OFATUMUMAB
     Indication: NEPHROTIC SYNDROME
     Dosage: WEEKLY DOSES; ADMINISTERED FOR 5 WEEKS
     Route: 065

REACTIONS (1)
  - BK polyomavirus test positive [Recovered/Resolved]
